FAERS Safety Report 13621317 (Version 2)
Quarter: 2017Q3

REPORT INFORMATION
  Report Type: Spontaneous
  Country: US (occurrence: US)
  Receive Date: 20170607
  Receipt Date: 20170911
  Transmission Date: 20171127
  Serious: Yes (Hospitalization, Other)
  Sender: FDA-Public Use
  Company Number: US-PFIZER INC-2017244305

PATIENT
  Age: 63 Year
  Sex: Male

DRUGS (2)
  1. OMEPRAZOLE. [Concomitant]
     Active Substance: OMEPRAZOLE
     Dosage: 40 MG, UNK
     Dates: start: 201506
  2. SUTENT [Suspect]
     Active Substance: SUNITINIB MALATE
     Dosage: 50 MG, CYCLIC (TAKE 1 CAPSULE BY MOUTH DAILY FOR 28 DAYS THEN STOP FOR 14 DAYS)
     Route: 048
     Dates: start: 20170524

REACTIONS (1)
  - Haematemesis [Recovered/Resolved]
